FAERS Safety Report 6511358-1 (Version None)
Quarter: 2009Q4

REPORT INFORMATION
  Report Type: 
  Country: None (occurrence: None)
  Receive Date: 20091222
  Receipt Date: 20090304
  Transmission Date: 20100525
  Serious: No
  Sender: FDA-Public Use
  Company Number: US-ASTRAZENECA-2009UW05860

PATIENT
  Age: 76 Year
  Sex: Female
  Weight: 83.9 kg

DRUGS (4)
  1. CRESTOR [Suspect]
     Route: 048
  2. ARIMIDEX [Concomitant]
     Indication: BREAST CANCER
     Route: 048
  3. HYZAAR [Concomitant]
     Indication: HYPERTENSION
  4. PLENDIL [Concomitant]
     Indication: HYPERTENSION

REACTIONS (1)
  - MUSCLE SPASMS [None]
